FAERS Safety Report 16216270 (Version 1)
Quarter: 2019Q2

REPORT INFORMATION
  Report Type: Spontaneous
  Country: US (occurrence: US)
  Receive Date: 20190419
  Receipt Date: 20190419
  Transmission Date: 20190711
  Serious: Yes (Death, Other)
  Sender: FDA-Public Use
  Company Number: US-CIPLA LTD.-2019US02037

PATIENT

DRUGS (1)
  1. LEVOFLOXACIN. [Suspect]
     Active Substance: LEVOFLOXACIN
     Indication: AEROMONAS INFECTION
     Dosage: UNK
     Route: 065

REACTIONS (3)
  - Cardiac arrest [Fatal]
  - Drug ineffective [Unknown]
  - Acute hepatic failure [Unknown]
